FAERS Safety Report 16172745 (Version 2)
Quarter: 2019Q3

REPORT INFORMATION
  Report Type: Spontaneous
  Country: US (occurrence: US)
  Receive Date: 20190409
  Receipt Date: 20190916
  Transmission Date: 20191004
  Serious: No
  Sender: FDA-Public Use
  Company Number: PHEH2019US014468

PATIENT
  Sex: Male

DRUGS (3)
  1. JADENU [Suspect]
     Active Substance: DEFERASIROX
     Dosage: 720 MG, QD
     Route: 048
  2. JADENU [Suspect]
     Active Substance: DEFERASIROX
     Dosage: 360 MG, BID
     Route: 048
  3. JADENU [Suspect]
     Active Substance: DEFERASIROX
     Indication: IRON METABOLISM DISORDER
     Dosage: 360 MG, TID
     Route: 048

REACTIONS (4)
  - Muscle spasms [Recovered/Resolved with Sequelae]
  - Arthralgia [Recovering/Resolving]
  - Blood triglycerides increased [Unknown]
  - Myalgia [Recovering/Resolving]
